FAERS Safety Report 15068342 (Version 1)
Quarter: 2018Q2

REPORT INFORMATION
  Report Type: Spontaneous
  Country: FR (occurrence: FR)
  Receive Date: 20180626
  Receipt Date: 20180626
  Transmission Date: 20180711
  Serious: Yes (Other)
  Sender: FDA-Public Use
  Company Number: FR-GLAXOSMITHKLINE-FR2018109520

PATIENT
  Age: 64 Year
  Sex: Male
  Weight: 86 kg

DRUGS (4)
  1. SKENAN [Suspect]
     Active Substance: MORPHINE SULFATE
     Indication: BACK PAIN
     Dosage: 260 MG, QD
     Route: 048
     Dates: start: 201805, end: 20180530
  2. KETAMINE [Suspect]
     Active Substance: KETAMINE
     Indication: BACK PAIN
     Dosage: 40 MG, QD
     Route: 042
     Dates: start: 201805, end: 20180529
  3. SCOPODERM TTS [Suspect]
     Active Substance: SCOPOLAMINE
     Indication: BACK PAIN
     Dosage: 1 DF, QD
     Route: 062
     Dates: start: 201805, end: 20180530
  4. ACTISKENAN [Suspect]
     Active Substance: MORPHINE SULFATE
     Indication: BACK PAIN
     Dosage: 40 MG, PRN
     Route: 048

REACTIONS (2)
  - Confusional state [Recovered/Resolved]
  - Hallucination [Recovered/Resolved]

NARRATIVE: CASE EVENT DATE: 20180530
